FAERS Safety Report 4608480-3 (Version None)
Quarter: 2005Q1

REPORT INFORMATION
  Report Type: 
  Country: None (occurrence: None)
  Receive Date: 20050311
  Receipt Date: 20050311
  Transmission Date: 20050727
  Serious: Yes (Life-Threatening)
  Sender: FDA-Public Use
  Company Number: None

PATIENT
  Sex: Female

DRUGS (1)
  1. HYDROMORPHONE [Suspect]
     Indication: PAIN
     Dosage: 0.5 MG HOUR PCA INTRAVENOUS
     Route: 042
     Dates: start: 20041209, end: 20041211

REACTIONS (2)
  - HYPOTENSION [None]
  - RESPIRATORY DEPRESSION [None]
